FAERS Safety Report 8064819-0 (Version None)
Quarter: 2012Q1

REPORT INFORMATION
  Report Type: 
  Country: None (occurrence: None)
  Receive Date: 20120124
  Receipt Date: 20120113
  Transmission Date: 20120608
  Serious: Yes (Hospitalization)
  Sender: FDA-Public Use
  Company Number: NL-BIOGENIDEC-2011BI047987

PATIENT
  Sex: Female

DRUGS (2)
  1. AVONEX [Suspect]
     Indication: MULTIPLE SCLEROSIS
     Route: 030
     Dates: start: 20060601, end: 20111022
  2. AVONEX [Suspect]
     Route: 030
     Dates: start: 20111023

REACTIONS (2)
  - INJECTION SITE REACTION [None]
  - ABSCESS BACTERIAL [None]
